FAERS Safety Report 24886890 (Version 3)
Quarter: 2025Q1

REPORT INFORMATION
  Report Type: Report from Study
  Country: US (occurrence: US)
  Receive Date: 20250127
  Receipt Date: 20250303
  Transmission Date: 20250408
  Serious: Yes (Death, Hospitalization, Other)
  Sender: ABBVIE
  Company Number: US-ABBVIE-6100542

PATIENT
  Age: 71 Year
  Sex: Male
  Weight: 111 kg

DRUGS (1)
  1. SKYRIZI [Suspect]
     Active Substance: RISANKIZUMAB-RZAA
     Indication: Psoriasis
     Dosage: FORM STRENGTH 150 MG
     Route: 058
     Dates: start: 20240126, end: 20241101

REACTIONS (8)
  - Angioimmunoblastic T-cell lymphoma [Fatal]
  - Pneumonia [Fatal]
  - Lung carcinoma cell type unspecified recurrent [Unknown]
  - Pulmonary oedema [Fatal]
  - Pneumonia fungal [Fatal]
  - B-cell lymphoma [Fatal]
  - Influenza [Fatal]
  - Atrial fibrillation [Fatal]

NARRATIVE: CASE EVENT DATE: 20240901
